FAERS Safety Report 5941090-4 (Version None)
Quarter: 2008Q4

REPORT INFORMATION
  Report Type: 
  Country: None (occurrence: None)
  Receive Date: 20081031
  Receipt Date: 20081016
  Transmission Date: 20090506
  Serious: Yes (Other)
  Sender: FDA-Public Use
  Company Number: CIP08002166

PATIENT
  Age: 75 Year
  Sex: Female

DRUGS (2)
  1. BENET (RISEDRONATE SODIUM) TABLET [Suspect]
     Indication: OSTEOPOROSIS
     Dosage: , ORAL
     Route: 048
  2. BENET (RISEDRONATE SODIUM) TABLET [Suspect]
     Indication: SPINAL COMPRESSION FRACTURE
     Dosage: , ORAL
     Route: 048

REACTIONS (2)
  - BONE DISORDER [None]
  - FEMUR FRACTURE [None]
